FAERS Safety Report 9639545 (Version 3)
Quarter: 2013Q4

REPORT INFORMATION
  Report Type: Spontaneous
  Country: US (occurrence: US)
  Receive Date: 20131023
  Receipt Date: 20131108
  Transmission Date: 20140711
  Serious: Yes (Hospitalization)
  Sender: FDA-Public Use
  Company Number: US-BIOGENIDEC-2013BI100032

PATIENT
  Age: 60 Year
  Sex: Female

DRUGS (2)
  1. AVONEX [Suspect]
     Indication: MULTIPLE SCLEROSIS
     Route: 030
     Dates: start: 19970301
  2. AVONEX [Suspect]
     Indication: MULTIPLE SCLEROSIS
     Route: 030

REACTIONS (7)
  - Hypertension [Recovered/Resolved]
  - Adjustment disorder [Recovered/Resolved]
  - Stress [Not Recovered/Not Resolved]
  - Aphasia [Unknown]
  - Nervousness [Not Recovered/Not Resolved]
  - Feeling cold [Recovered/Resolved]
  - Vomiting [Recovered/Resolved]
